FAERS Safety Report 10109120 (Version 4)
Quarter: 2016Q2

REPORT INFORMATION
  Report Type: Spontaneous
  Country: GB (occurrence: GB)
  Receive Date: 20140425
  Receipt Date: 20160602
  Transmission Date: 20160815
  Serious: Yes (Other)
  Sender: FDA-Public Use
  Company Number: GB-JNJFOC-20140412136

PATIENT

DRUGS (6)
  1. CYCLOPHOSPHAMIDE. [Concomitant]
     Active Substance: CYCLOPHOSPHAMIDE
     Route: 065
  2. DOXORUBICIN [Suspect]
     Active Substance: DOXORUBICIN
     Indication: PLASMA CELL MYELOMA
     Dosage: 2-4 21-DAY CYCLES
     Route: 042
  3. DEXAMETHASONE. [Suspect]
     Active Substance: DEXAMETHASONE
     Indication: PLASMA CELL MYELOMA
     Dosage: 2-4 21-DAY CYCLES
     Route: 048
  4. BORTEZOMIB [Suspect]
     Active Substance: BORTEZOMIB
     Indication: PLASMA CELL MYELOMA
     Dosage: 2-4 21-DAY CYCLES
     Route: 042
  5. PLERIXAFOR [Concomitant]
     Active Substance: PLERIXAFOR
     Route: 065
  6. GRANULOCYTE COLONY-STIMULATING FACTOR [Concomitant]
     Active Substance: GRANULOCYTE COLONY-STIMULATING FACTOR NOS
     Route: 065

REACTIONS (15)
  - Vomiting [Unknown]
  - Peripheral sensory neuropathy [Unknown]
  - Adverse event [Unknown]
  - Infection [Unknown]
  - Nausea [Unknown]
  - Thrombosis [Unknown]
  - Anaemia [Unknown]
  - Neutropenia [Unknown]
  - Thrombocytopenia [Unknown]
  - Skin toxicity [Unknown]
  - Pyrexia [Unknown]
  - Peripheral motor neuropathy [Unknown]
  - Diarrhoea [Unknown]
  - Toxicity to various agents [Unknown]
  - Lethargy [Unknown]
